FAERS Safety Report 18538942 (Version 8)
Quarter: 2021Q2

REPORT INFORMATION
  Report Type: Spontaneous
  Country: JP (occurrence: JP)
  Receive Date: 20201124
  Receipt Date: 20210408
  Transmission Date: 20210717
  Serious: Yes (Hospitalization, Other)
  Sender: FDA-Public Use
  Company Number: JP-ABBVIE-20K-087-3660246-00

PATIENT
  Age: 71 Year
  Sex: Female
  Weight: 54 kg

DRUGS (3)
  1. CELECOXIB. [Suspect]
     Active Substance: CELECOXIB
     Indication: RHEUMATOID ARTHRITIS
     Route: 065
     Dates: start: 20080508, end: 20201112
  2. METHOTREXATE. [Suspect]
     Active Substance: METHOTREXATE
     Indication: RHEUMATOID ARTHRITIS
     Route: 065
     Dates: start: 201102, end: 20190918
  3. HUMIRA [Suspect]
     Active Substance: ADALIMUMAB
     Indication: RHEUMATOID ARTHRITIS
     Route: 058
     Dates: start: 20110208, end: 20201106

REACTIONS (12)
  - Nephritis [Unknown]
  - Renal impairment [Unknown]
  - Urinary occult blood positive [Unknown]
  - Nephrotic syndrome [Recovering/Resolving]
  - Nephropathy toxic [Unknown]
  - Respiratory symptom [Recovering/Resolving]
  - Protein urine present [Unknown]
  - Renal disorder [Unknown]
  - Cell marker increased [Recovering/Resolving]
  - Hypoalbuminaemia [Unknown]
  - Serum amyloid A protein increased [Unknown]
  - Renal amyloidosis [Unknown]

NARRATIVE: CASE EVENT DATE: 20190918
